FAERS Safety Report 15431414 (Version 1)
Quarter: 2018Q3

REPORT INFORMATION
  Report Type: Spontaneous
  Country: US (occurrence: US)
  Receive Date: 20180926
  Receipt Date: 20180926
  Transmission Date: 20181010
  Serious: Yes (Other)
  Sender: FDA-Public Use
  Company Number: US-SA-2018SA128494

PATIENT
  Sex: Female

DRUGS (3)
  1. AUBAGIO [Suspect]
     Active Substance: TERIFLUNOMIDE
     Dosage: 14 MG, QD
     Route: 048
     Dates: start: 20180317
  2. REBIF [Suspect]
     Active Substance: INTERFERON BETA-1A
     Dosage: UNK UNK,UNK
     Route: 065
  3. AUBAGIO [Suspect]
     Active Substance: TERIFLUNOMIDE
     Indication: MULTIPLE SCLEROSIS
     Dosage: UNK UNK,UNK

REACTIONS (6)
  - Hot flush [Unknown]
  - Diarrhoea [Unknown]
  - Hypersensitivity [Unknown]
  - Adverse drug reaction [Unknown]
  - Alopecia [Unknown]
  - Multiple sclerosis relapse [Unknown]
